FAERS Safety Report 6499873-0 (Version None)
Quarter: 2009Q4

REPORT INFORMATION
  Report Type: 
  Country: None (occurrence: None)
  Receive Date: 20091214
  Receipt Date: 20091214
  Transmission Date: 20100525
  Serious: Yes (Other)
  Sender: FDA-Public Use
  Company Number: None

PATIENT
  Age: 59 Year
  Sex: Male

DRUGS (1)
  1. ALISKIREN [Suspect]
     Indication: HYPERTENSION
     Dosage: 150 MG EVERY DAY PO
     Route: 048
     Dates: start: 20090708, end: 20090809

REACTIONS (4)
  - ABDOMINAL DISCOMFORT [None]
  - COUGH [None]
  - NAUSEA [None]
  - VOMITING [None]
